FAERS Safety Report 8381418-1 (Version None)
Quarter: 2012Q2

REPORT INFORMATION
  Report Type: 
  Country: None (occurrence: None)
  Receive Date: 20120523
  Receipt Date: 20120509
  Transmission Date: 20120825
  Serious: Yes (Hospitalization)
  Sender: FDA-Public Use
  Company Number: DE-ROCHE-1068592

PATIENT
  Sex: Female

DRUGS (10)
  1. LEFLUNOMIDE [Suspect]
     Indication: RHEUMATOID ARTHRITIS
     Route: 065
     Dates: start: 20060301, end: 20100801
  2. HYDROCHLOROTHIAZIDE [Concomitant]
     Route: 065
  3. LEFLUNOMIDE [Suspect]
     Route: 065
     Dates: start: 20101201
  4. BISOPROLOL FUMARATE [Concomitant]
     Route: 065
  5. ZOLOFT [Concomitant]
     Route: 065
  6. ERGOCALCIFEROL [Concomitant]
     Route: 065
  7. IBUPROFEN TABLETS [Concomitant]
     Route: 065
  8. PANTOPRAZOLE [Concomitant]
     Route: 065
  9. VALORON N [Concomitant]
     Route: 065
  10. ACTEMRA [Suspect]
     Indication: RHEUMATOID ARTHRITIS
     Route: 065
     Dates: start: 20090201, end: 20110201

REACTIONS (2)
  - OSTEOMYELITIS [None]
  - IMPAIRED HEALING [None]
